FAERS Safety Report 5719834-6 (Version None)
Quarter: 2008Q2

REPORT INFORMATION
  Report Type: 
  Country: None (occurrence: None)
  Receive Date: 20080425
  Receipt Date: 20080425
  Transmission Date: 20081010
  Serious: No
  Sender: FDA-Public Use
  Company Number: None

PATIENT
  Age: 91 Year
  Sex: Male

DRUGS (2)
  1. LORAZEPAM [Suspect]
     Dosage: 0.25 MG BID PO
     Route: 048
     Dates: start: 20070806, end: 20071218
  2. PERPHENAZINE [Suspect]
     Dosage: 4 MG BID PO
     Route: 048
     Dates: start: 20070606, end: 20071218

REACTIONS (4)
  - ANXIETY [None]
  - ASPIRATION [None]
  - BRONCHITIS [None]
  - DEMENTIA ALZHEIMER'S TYPE [None]
